FAERS Safety Report 9188211 (Version 1)
Quarter: 2013Q1

REPORT INFORMATION
  Report Type: Spontaneous
  Country: SK (occurrence: SK)
  Receive Date: 20130325
  Receipt Date: 20130325
  Transmission Date: 20140127
  Serious: Yes (Death, Hospitalization)
  Sender: FDA-Public Use
  Company Number: SK-JNJFOC-20130311847

PATIENT
  Sex: Male
  Weight: 70 kg

DRUGS (2)
  1. XARELTO [Suspect]
     Indication: PRODUCT USED FOR UNKNOWN INDICATION
     Route: 065
     Dates: start: 20121016
  2. KALDYUM [Concomitant]
     Route: 065
     Dates: start: 201301

REACTIONS (4)
  - Cardiac failure [Fatal]
  - Melaena [Unknown]
  - Asthenia [Unknown]
  - Dyspnoea [Unknown]
